FAERS Safety Report 17869023 (Version 2)
Quarter: 2021Q1

REPORT INFORMATION
  Report Type: Report from Study
  Country: None (occurrence: US)
  Receive Date: 20200608
  Receipt Date: 20210317
  Transmission Date: 20210419
  Serious: Yes (Hospitalization)
  Sender: FDA-Public Use
  Company Number: US-ABBVIE-20K-163-3308534-00

PATIENT
  Age: 56 Year
  Sex: Female

DRUGS (3)
  1. HUMIRA [Suspect]
     Active Substance: ADALIMUMAB
     Route: 058
     Dates: start: 20210226
  2. HUMIRA [Suspect]
     Active Substance: ADALIMUMAB
     Route: 058
     Dates: start: 2020, end: 202003
  3. HUMIRA [Suspect]
     Active Substance: ADALIMUMAB
     Indication: RHEUMATOID ARTHRITIS
     Route: 058
     Dates: start: 20190530, end: 202002

REACTIONS (12)
  - Depression [Unknown]
  - Joint swelling [Recovering/Resolving]
  - Joint stiffness [Recovering/Resolving]
  - Arthralgia [Recovering/Resolving]
  - Therapy cessation [Unknown]
  - Sinusitis [Recovered/Resolved]
  - Gait disturbance [Recovering/Resolving]
  - Chronic obstructive pulmonary disease [Unknown]
  - Impaired self-care [Recovering/Resolving]
  - Loss of personal independence in daily activities [Recovering/Resolving]
  - Fear of disease [Unknown]
  - Anxiety [Unknown]

NARRATIVE: CASE EVENT DATE: 202002
